FAERS Safety Report 14981939 (Version 2)
Quarter: 2018Q3

REPORT INFORMATION
  Report Type: Spontaneous
  Country: CH (occurrence: CH)
  Receive Date: 20180607
  Receipt Date: 20180810
  Transmission Date: 20181010
  Serious: Yes (Hospitalization, Other)
  Sender: FDA-Public Use
  Company Number: CH-ASTRAZENECA-2006PK00634

PATIENT
  Age: 66 Year
  Sex: Male
  Weight: 99.6 kg

DRUGS (9)
  1. LITHIUM CARBONATE. [Suspect]
     Active Substance: LITHIUM CARBONATE
     Indication: BIPOLAR DISORDER
     Route: 048
     Dates: start: 1967, end: 20060124
  2. ROCEPHIN [Concomitant]
     Active Substance: CEFTRIAXONE SODIUM
     Indication: CHOLECYSTITIS ACUTE
     Route: 042
     Dates: start: 20060122, end: 20060127
  3. LIQUEMIN [Concomitant]
     Active Substance: HEPARIN SODIUM
     Route: 058
     Dates: end: 20060124
  4. DEPAKINE [Interacting]
     Active Substance: VALPROATE SODIUM
     Indication: BIPOLAR DISORDER
     Route: 048
     Dates: start: 200203, end: 20060124
  5. FLAGYL [Concomitant]
     Active Substance: METRONIDAZOLE\METRONIDAZOLE HYDROCHLORIDE
     Indication: CHOLECYSTITIS ACUTE
     Route: 042
     Dates: start: 20060122, end: 20060127
  6. SEROQUEL [Interacting]
     Active Substance: QUETIAPINE FUMARATE
     Indication: BIPOLAR DISORDER
     Dosage: 500 MG WITHIN 48 HOURS
     Route: 048
     Dates: start: 20060122, end: 20060123
  7. DEPAKINE [Interacting]
     Active Substance: VALPROATE SODIUM
     Indication: BIPOLAR DISORDER
     Route: 048
     Dates: start: 20060126
  8. SEROQUEL [Suspect]
     Active Substance: QUETIAPINE FUMARATE
     Indication: BIPOLAR DISORDER
     Dosage: DAILY DOSE GRADUALLY DECREASED FROM 600 TO 200 MG
     Route: 048
     Dates: start: 200512, end: 200601
  9. SEROQUEL [Interacting]
     Active Substance: QUETIAPINE FUMARATE
     Indication: BIPOLAR DISORDER
     Route: 048
     Dates: start: 20060127

REACTIONS (5)
  - Hypernatraemia [Recovered/Resolved]
  - Drug interaction [Recovered/Resolved]
  - Parkinson^s disease [Recovered/Resolved]
  - Extrapyramidal disorder [Recovered/Resolved]
  - Depressed level of consciousness [Recovered/Resolved]

NARRATIVE: CASE EVENT DATE: 20060124
